FAERS Safety Report 9826900 (Version 2)
Quarter: 2014Q1

REPORT INFORMATION
  Report Type: Spontaneous
  Country: ZA (occurrence: ZA)
  Receive Date: 20140117
  Receipt Date: 20140212
  Transmission Date: 20141002
  Serious: Yes (Other)
  Sender: FDA-Public Use
  Company Number: ZA-PFIZER INC-2014011386

PATIENT
  Age: 18 Year
  Sex: Female
  Weight: 80 kg

DRUGS (9)
  1. FENTANYL [Suspect]
     Indication: ANAESTHESIA
     Dosage: 75 UG, UNK
  2. VECURONIUM BROMIDE [Suspect]
     Indication: HYPOTONIA
     Dosage: 7 MG, UNK
  3. HALOTHANE [Suspect]
     Indication: MECHANICAL VENTILATION
     Dosage: 1.5 - 2%, UNK
  4. MIDAZOLAM [Concomitant]
     Indication: PREMEDICATION
     Dosage: 15 MG, UNK
     Route: 048
  5. OXYGEN [Concomitant]
     Indication: OXYGEN SUPPLEMENTATION
     Dosage: 5 MINUTES WITH 100%
  6. OXYGEN [Concomitant]
     Indication: MECHANICAL VENTILATION
     Dosage: 50%
  7. RINGER-LACTATE SOLUTION [Concomitant]
     Dosage: UNK
     Route: 042
  8. THIOPENTONE [Concomitant]
     Indication: ANAESTHESIA
     Dosage: 300 MG, UNK
  9. NITROUS OXIDE [Concomitant]
     Indication: MECHANICAL VENTILATION
     Dosage: 50%

REACTIONS (2)
  - Sinus arrest [Recovered/Resolved]
  - Bradycardia [Recovered/Resolved]
